FAERS Safety Report 10675123 (Version 3)
Quarter: 2015Q2

REPORT INFORMATION
  Report Type: Spontaneous
  Country: US (occurrence: US)
  Receive Date: 20141224
  Receipt Date: 20150504
  Transmission Date: 20150821
  Serious: Yes (Death, Other)
  Sender: FDA-Public Use
  Company Number: US-GLAXOSMITHKLINE-US2014GSK041167

PATIENT
  Age: 62 Year
  Sex: Male
  Weight: 77.98 kg

DRUGS (7)
  1. TAFINLAR [Suspect]
     Active Substance: DABRAFENIB MESYLATE
     Indication: MALIGNANT MELANOMA
     Dosage: 100 MG, BID
     Route: 048
  2. TAFINLAR [Suspect]
     Active Substance: DABRAFENIB MESYLATE
     Indication: MALIGNANT MELANOMA STAGE IV
     Dosage: 150 MG, BID (75 MG CAP)
     Route: 048
     Dates: start: 20140925
  3. MEKINIST [Suspect]
     Active Substance: TRAMETINIB DIMETHYL SULFOXIDE
     Indication: MALIGNANT MELANOMA
     Dosage: 1.5 MG, QD
     Route: 048
     Dates: start: 20140925
  4. ST. JOHN^S WORT [Concomitant]
     Active Substance: ST. JOHN^S WORT
  5. FENTANYL. [Concomitant]
     Active Substance: FENTANYL
     Route: 062
  6. ZOFRAN [Concomitant]
     Active Substance: ONDANSETRON HYDROCHLORIDE
  7. LIDODERM [Concomitant]
     Active Substance: LIDOCAINE
     Route: 062

REACTIONS (6)
  - Headache [Unknown]
  - Urine odour abnormal [Unknown]
  - Death [Fatal]
  - Pain [Unknown]
  - Dysuria [Unknown]
  - Chromaturia [Unknown]

NARRATIVE: CASE EVENT DATE: 20150424
